FAERS Safety Report 10343627 (Version 2)
Quarter: 2014Q3

REPORT INFORMATION
  Report Type: Spontaneous
  Country: KE (occurrence: KE)
  Receive Date: 20140725
  Receipt Date: 20140812
  Transmission Date: 20150326
  Serious: Yes (Hospitalization)
  Sender: FDA-Public Use
  Company Number: KE-GLAXOSMITHKLINE-B1017542A

PATIENT
  Age: 3 Year
  Sex: Male
  Weight: 16 kg

DRUGS (2)
  1. ZINNAT [Suspect]
     Active Substance: CEFUROXIME AXETIL
     Indication: TONSILLITIS
     Dosage: 500MG PER DAY
     Route: 065
  2. PARACETAMOL [Concomitant]
     Active Substance: ACETAMINOPHEN
     Indication: TONSILLITIS
     Dosage: 15ML PER DAY
     Route: 048

REACTIONS (2)
  - Pyrexia [Unknown]
  - Tonsillar hypertrophy [Unknown]
